FAERS Safety Report 10150357 (Version 1)
Quarter: 2014Q2

REPORT INFORMATION
  Report Type: Spontaneous
  Country: US (occurrence: US)
  Receive Date: 20140502
  Receipt Date: 20140502
  Transmission Date: 20141212
  Serious: Yes (Hospitalization)
  Sender: FDA-Public Use
  Company Number: US-JNJFOC-20140418306

PATIENT
  Sex: Male

DRUGS (1)
  1. INVOKANA [Suspect]
     Indication: DIABETES MELLITUS INADEQUATE CONTROL

REACTIONS (5)
  - Diabetic ketoacidosis [Unknown]
  - Dehydration [Unknown]
  - Off label use [Unknown]
  - Gastrointestinal infection [Unknown]
  - Vomiting [Unknown]
